FAERS Safety Report 9495429 (Version 1)
Quarter: 2013Q3

REPORT INFORMATION
  Report Type: Spontaneous
  Country: US (occurrence: US)
  Receive Date: 20130903
  Receipt Date: 20130903
  Transmission Date: 20140515
  Serious: No
  Sender: FDA-Public Use
  Company Number: US-PFIZER INC-2013252820

PATIENT
  Age: 61 Year
  Sex: Male

DRUGS (2)
  1. ADVIL [Suspect]
     Indication: BACK PAIN
     Dosage: UNK
     Dates: start: 201308, end: 20130901
  2. ADVIL [Suspect]
     Indication: ARTHRALGIA

REACTIONS (3)
  - Oral discomfort [Recovering/Resolving]
  - Glossodynia [Recovering/Resolving]
  - Product quality issue [Recovering/Resolving]
